FAERS Safety Report 13475925 (Version 2)
Quarter: 2017Q2

REPORT INFORMATION
  Report Type: Report from Study
  Country: AR (occurrence: AR)
  Receive Date: 20170425
  Receipt Date: 20170524
  Transmission Date: 20170830
  Serious: Yes (Hospitalization)
  Sender: FDA-Public Use
  Company Number: PHHY2017AR060926

PATIENT
  Age: 69 Year
  Sex: Male

DRUGS (2)
  1. DIOVAN D [Suspect]
     Active Substance: HYDROCHLOROTHIAZIDE\VALSARTAN
     Indication: HYPERTENSION
     Dosage: 1 DF, QD (80/12.5, UNITS NOT PROVIDED)
     Route: 065
     Dates: start: 201104
  2. ALLOPURINOL. [Concomitant]
     Active Substance: ALLOPURINOL
     Indication: BLOOD URIC ACID INCREASED
     Route: 065

REACTIONS (5)
  - Catheter site infection [Recovering/Resolving]
  - Gynaecomastia [Recovered/Resolved]
  - Breast pain [Recovered/Resolved]
  - Urethral obstruction [Recovering/Resolving]
  - Prostate cancer [Recovering/Resolving]

NARRATIVE: CASE EVENT DATE: 201512
